FAERS Safety Report 8490900-8 (Version None)
Quarter: 2012Q3

REPORT INFORMATION
  Report Type: 
  Country: None (occurrence: None)
  Receive Date: 20120706
  Receipt Date: 20120625
  Transmission Date: 20120928
  Serious: Yes (Hospitalization, Other)
  Sender: FDA-Public Use
  Company Number: US-ASTRAZENECA-2011SE32251

PATIENT
  Age: 66 Year
  Sex: Female
  Weight: 90.7 kg

DRUGS (25)
  1. NEXIUM [Suspect]
     Dosage: 1 TIME A DAY
     Route: 048
     Dates: start: 20010909, end: 20020101
  2. NEXIUM [Suspect]
     Route: 048
     Dates: start: 20080924
  3. NEXIUM [Suspect]
     Route: 048
     Dates: start: 20080924
  4. CALCIUM [Concomitant]
     Indication: OSTEOPOROSIS
  5. BENICAR [Concomitant]
     Dates: start: 20080729
  6. NEXIUM [Suspect]
     Indication: GASTROOESOPHAGEAL REFLUX DISEASE
     Dosage: TWICE A DAY
     Route: 048
  7. NEXIUM [Suspect]
     Dosage: 2 TIMES A DAY
     Route: 048
     Dates: start: 20021102, end: 20120101
  8. ZANTAC [Concomitant]
     Dosage: 1 TIME FOR 3 WEEKS
     Dates: start: 19930101
  9. VITAMIN D [Concomitant]
     Indication: OSTEOPOROSIS
  10. BENICAR [Concomitant]
     Dates: start: 20110216
  11. HYDROCODONE BITARTRATE [Concomitant]
  12. VITAMIN TAB [Concomitant]
  13. NEXIUM [Suspect]
     Route: 048
     Dates: start: 20020613
  14. NEXIUM [Suspect]
     Dosage: TWICE A DAY
     Route: 048
  15. NEXIUM [Suspect]
     Route: 048
     Dates: start: 20080729
  16. ACIPHEX [Concomitant]
     Dosage: 1 TIME A DAY/20 MG QD BEFORE BREAKFAST
     Dates: start: 20020613
  17. BENICAR [Concomitant]
     Indication: BLOOD PRESSURE
  18. ACETAMINOPHEN [Concomitant]
     Indication: ARTHRITIS
     Dates: start: 20090312
  19. NEXIUM [Suspect]
     Dosage: 1 TIME A DAY
     Route: 048
     Dates: start: 20010909, end: 20020101
  20. NEXIUM [Suspect]
     Route: 048
     Dates: start: 20020613
  21. VICODIN [Concomitant]
  22. PHAZYM [Concomitant]
     Dosage: POST MEALS
  23. NEXIUM [Suspect]
     Route: 048
     Dates: start: 20080729
  24. NEXIUM [Suspect]
     Dosage: 2 TIMES A DAY
     Route: 048
     Dates: start: 20021102, end: 20120101
  25. PREMPRO [Concomitant]
     Dates: start: 20020613

REACTIONS (14)
  - WRIST FRACTURE [None]
  - SPINAL FRACTURE [None]
  - OSTEOPOROSIS [None]
  - MENISCUS LESION [None]
  - SPONDYLITIS [None]
  - FOOT FRACTURE [None]
  - VITAMIN D DEFICIENCY [None]
  - ANKLE FRACTURE [None]
  - CERVICAL SPINAL STENOSIS [None]
  - CALCIUM DEFICIENCY [None]
  - UPPER LIMB FRACTURE [None]
  - LIGAMENT SPRAIN [None]
  - ARTHRITIS [None]
  - OSTEOARTHRITIS [None]
